FAERS Safety Report 7898037-3 (Version None)
Quarter: 2011Q4

REPORT INFORMATION
  Report Type: 
  Country: None (occurrence: None)
  Receive Date: 20111107
  Receipt Date: 20111107
  Transmission Date: 20120403
  Serious: Yes (Life-Threatening)
  Sender: FDA-Public Use
  Company Number: None

PATIENT
  Sex: Male
  Weight: 83.914 kg

DRUGS (1)
  1. EFFEXOR XR [Suspect]
     Indication: DISTURBANCE IN ATTENTION
     Dosage: 150 MG
     Route: 048

REACTIONS (3)
  - PAIN [None]
  - HEADACHE [None]
  - FATIGUE [None]
